FAERS Safety Report 8765317 (Version 2)
Quarter: 2013Q4

REPORT INFORMATION
  Report Type: Spontaneous
  Country: US (occurrence: US)
  Receive Date: 20120831
  Receipt Date: 20131031
  Transmission Date: 20140711
  Serious: Yes (Other)
  Sender: FDA-Public Use
  Company Number: US-009507513-2012SP006697

PATIENT
  Sex: Female

DRUGS (4)
  1. PEG-INTRON [Suspect]
     Indication: HEPATITIS C
     Dosage: UNK
     Dates: start: 20110916, end: 20120518
  2. REBETOL [Suspect]
     Indication: HEPATITIS C
     Dosage: UNK
     Dates: start: 20110916, end: 20120518
  3. TELAPREVIR [Suspect]
     Indication: HEPATITIS C
     Dosage: UNK
     Dates: start: 20110916, end: 20120518
  4. RISPERDAL [Concomitant]
     Dosage: UNK

REACTIONS (8)
  - Suicidal ideation [Unknown]
  - Hernia [Unknown]
  - Urinary tract infection [Unknown]
  - Abdominal pain [Unknown]
  - Rash [Unknown]
  - Pruritus [Unknown]
  - Myalgia [Unknown]
  - Drug ineffective [Unknown]
